FAERS Safety Report 8537737-9 (Version None)
Quarter: 2012Q3

REPORT INFORMATION
  Report Type: 
  Country: None (occurrence: None)
  Receive Date: 20120725
  Receipt Date: 20120724
  Transmission Date: 20120928
  Serious: Yes (Life-Threatening)
  Sender: FDA-Public Use
  Company Number: PHHY2012NL063657

PATIENT
  Sex: Female

DRUGS (1)
  1. GABAPENTIN [Suspect]
     Indication: NEUROPATHY PERIPHERAL
     Dosage: 1 DF, UNK
     Route: 048
     Dates: start: 20120710, end: 20120712

REACTIONS (1)
  - HYPOGLYCAEMIC UNCONSCIOUSNESS [None]
